FAERS Safety Report 8417406-6 (Version None)
Quarter: 2012Q2

REPORT INFORMATION
  Report Type: 
  Country: None (occurrence: None)
  Receive Date: 20120606
  Receipt Date: 20120601
  Transmission Date: 20120825
  Serious: Yes (Death)
  Sender: FDA-Public Use
  Company Number: US-CELGENEUS-163-21880-12060239

PATIENT
  Sex: Male

DRUGS (11)
  1. CALCIUM WITH VITAMIN D [Concomitant]
     Dosage: 600
     Route: 065
  2. DEXAMETHASONE [Concomitant]
     Route: 065
  3. ACYCLOVIR [Concomitant]
     Route: 065
  4. NIFEDIPINE [Concomitant]
     Route: 065
  5. REVLIMID [Suspect]
     Dosage: 25 MILLIGRAM
     Route: 048
     Dates: start: 20120510
  6. ALPRAZOLAM [Concomitant]
     Route: 065
  7. CEFUROXIME [Concomitant]
     Route: 065
  8. APAP TAB [Concomitant]
     Dosage: 500
     Route: 065
  9. REVLIMID [Suspect]
     Dosage: 10 MILLIGRAM
     Route: 048
     Dates: start: 20120301
  10. AXETIL [Concomitant]
     Route: 065
  11. REVLIMID [Suspect]
     Dosage: 25 MILLIGRAM
     Route: 048
     Dates: start: 20111001

REACTIONS (1)
  - DEATH [None]
